FAERS Safety Report 17689087 (Version 2)
Quarter: 2021Q2

REPORT INFORMATION
  Report Type: Spontaneous
  Country: US (occurrence: US)
  Receive Date: 20200421
  Receipt Date: 20210415
  Transmission Date: 20210716
  Serious: No
  Sender: FDA-Public Use
  Company Number: US-DUCHESNAY-2020US000012

PATIENT
  Age: 70 Year
  Sex: Female

DRUGS (4)
  1. VITAMIN B12 [Concomitant]
     Active Substance: CYANOCOBALAMIN
  2. LORAZEPAM. [Concomitant]
     Active Substance: LORAZEPAM
     Route: 048
  3. OSPHENA [Suspect]
     Active Substance: OSPEMIFENE
     Dosage: 60 MILLIGRAM, QD
     Route: 048
     Dates: start: 20200117
  4. OSPHENA [Suspect]
     Active Substance: OSPEMIFENE
     Indication: PELVIC FLOOR MUSCLE WEAKNESS
     Dosage: 60 MILLIGRAM, QD
     Route: 048
     Dates: start: 201904, end: 201912

REACTIONS (2)
  - Alopecia [Recovered/Resolved]
  - Off label use [Unknown]

NARRATIVE: CASE EVENT DATE: 201912
